FAERS Safety Report 15100700 (Version 1)
Quarter: 2018Q3

REPORT INFORMATION
  Report Type: Report from Study
  Country: ES (occurrence: ES)
  Receive Date: 20180703
  Receipt Date: 20180703
  Transmission Date: 20181010
  Serious: Yes (Hospitalization)
  Sender: FDA-Public Use
  Company Number: ES-ASTRAZENECA-2018SE83217

PATIENT
  Weight: 81 kg

DRUGS (3)
  1. DURVALUMAB. [Suspect]
     Active Substance: DURVALUMAB
     Indication: NEOPLASM
     Route: 042
     Dates: start: 20180621
  2. OXYCODONE [Concomitant]
     Active Substance: OXYCODONE
     Dosage: 10
     Route: 048
     Dates: start: 20180620
  3. DURVALUMAB. [Suspect]
     Active Substance: DURVALUMAB
     Indication: HIV INFECTION
     Route: 042
     Dates: start: 20180621

REACTIONS (1)
  - Pancreatitis [Unknown]

NARRATIVE: CASE EVENT DATE: 20180624
